FAERS Safety Report 21773571 (Version 1)
Quarter: 2022Q4

REPORT INFORMATION
  Report Type: Report from Study
  Country: US (occurrence: US)
  Receive Date: 20221223
  Receipt Date: 20221223
  Transmission Date: 20230113
  Serious: No
  Sender: FDA-Public Use
  Company Number: US-ABBVIE-4209517

PATIENT
  Sex: Female
  Weight: 59.874 kg

DRUGS (1)
  1. HUMIRA [Suspect]
     Active Substance: ADALIMUMAB
     Indication: Rheumatoid arthritis
     Dosage: CITRATE FREE?STRENGTH: 40MG?DRUG STARTED ABOUT FOUR OR FIVE YEARS AGO
     Route: 058

REACTIONS (3)
  - Memory impairment [Unknown]
  - Arthralgia [Recovered/Resolved]
  - Unevaluable event [Unknown]

NARRATIVE: CASE EVENT DATE: 20210101
